FAERS Safety Report 9238843 (Version 1)
Quarter: 2013Q1

REPORT INFORMATION
  Report Type: Spontaneous
  Country: US (occurrence: None)
  Receive Date: 20121102
  Receipt Date: 20121102
  Transmission Date: 20140127
  Serious: Yes (Hospitalization)
  Sender: FDA-Public Use
  Company Number: 137972

PATIENT
  Age: 61 Year
  Sex: Female

DRUGS (2)
  1. LEUCOVORIN CALCIUM [Suspect]
     Indication: COLORECTAL CANCER
     Route: 042
     Dates: start: 20120417
  2. LEUCOVORIN CALCIUM [Suspect]
     Indication: METASTATIC NEOPLASM
     Route: 042
     Dates: start: 20120417

REACTIONS (1)
  - Febrile neutropenia [None]
